FAERS Safety Report 21219708 (Version 4)
Quarter: 2023Q2

REPORT INFORMATION
  Report Type: Spontaneous
  Country: US (occurrence: US)
  Receive Date: 20220817
  Receipt Date: 20230609
  Transmission Date: 20230722
  Serious: Yes (Other)
  Sender: FDA-Public Use
  Company Number: US-BRISTOL-MYERS SQUIBB COMPANY-2022-090694

PATIENT
  Age: 62 Year
  Sex: Female
  Weight: 73.94 kg

DRUGS (2)
  1. REVLIMID [Suspect]
     Active Substance: LENALIDOMIDE
     Indication: Myelodysplastic syndrome
     Dosage: 21D ON 7D OFF
     Route: 048
  2. REVLIMID [Suspect]
     Active Substance: LENALIDOMIDE
     Indication: Plasma cell myeloma

REACTIONS (10)
  - Peripheral swelling [Unknown]
  - Arthralgia [Unknown]
  - Visual impairment [Unknown]
  - Dry skin [Unknown]
  - Nightmare [Unknown]
  - Skin exfoliation [Unknown]
  - Oedema peripheral [Unknown]
  - Pruritus [Unknown]
  - Neuropathy peripheral [Unknown]
  - Skin discolouration [Unknown]
